FAERS Safety Report 8368042-1 (Version None)
Quarter: 2012Q2

REPORT INFORMATION
  Report Type: 
  Country: None (occurrence: None)
  Receive Date: 20120516
  Receipt Date: 20120430
  Transmission Date: 20120825
  Serious: Yes (Other)
  Sender: FDA-Public Use
  Company Number: 2012P1019905

PATIENT
  Age: 36 Year
  Sex: Female

DRUGS (2)
  1. TOPIRAMATE [Suspect]
  2. CARBAMAZEPINE [Suspect]

REACTIONS (3)
  - CONVULSION [None]
  - HEADACHE [None]
  - DRUG INEFFECTIVE [None]
